FAERS Safety Report 16461180 (Version 1)
Quarter: 2019Q2

REPORT INFORMATION
  Report Type: Spontaneous
  Country: US (occurrence: US)
  Receive Date: 20190620
  Receipt Date: 20190620
  Transmission Date: 20190711
  Serious: No
  Sender: FDA-Public Use
  Company Number: US-TEVA-2019-US-1061718

PATIENT
  Age: 32 Year
  Sex: Male

DRUGS (1)
  1. ESTRADIOL TALETS [Suspect]
     Active Substance: ESTRADIOL
     Route: 060

REACTIONS (2)
  - Trans-sexualism [Unknown]
  - Product use issue [Unknown]
